FAERS Safety Report 21569654 (Version 3)
Quarter: 2024Q3

REPORT INFORMATION
  Report Type: Spontaneous
  Country: US (occurrence: US)
  Receive Date: 20221109
  Receipt Date: 20240827
  Transmission Date: 20241016
  Serious: Yes (Hospitalization, Other)
  Sender: AMGEN
  Company Number: US-AMGEN-USASP2022190071

PATIENT
  Age: 62 Year
  Sex: Male

DRUGS (3)
  1. FILGRASTIM [Suspect]
     Active Substance: FILGRASTIM
     Indication: Stem cell transplant
     Dosage: 10 MICROGRAM/KILOGRAM, QD
     Route: 065
  2. FILGRASTIM [Suspect]
     Active Substance: FILGRASTIM
     Dosage: 10 MICROGRAM/KILOGRAM, QD (DAY+7)
     Route: 065
  3. SOTROVIMAB [Concomitant]
     Active Substance: SOTROVIMAB

REACTIONS (7)
  - Neutropenia [Recovered/Resolved]
  - Nausea [Recovered/Resolved]
  - Vomiting [Recovered/Resolved]
  - Decreased appetite [Recovered/Resolved]
  - Thrombocytopenia [Unknown]
  - COVID-19 [Recovered/Resolved]
  - Anaemia [Unknown]
